FAERS Safety Report 11285490 (Version 1)
Quarter: 2015Q3

REPORT INFORMATION
  Report Type: Spontaneous
  Country: JP (occurrence: JP)
  Receive Date: 20150720
  Receipt Date: 20150720
  Transmission Date: 20151125
  Serious: Yes (Hospitalization)
  Sender: FDA-Public Use
  Company Number: PHJP2015JP011804

PATIENT
  Sex: Female

DRUGS (4)
  1. PURSENNIDE TAB [Suspect]
     Active Substance: SENNOSIDES A AND B
     Indication: MEDICATION RESIDUE PRESENT
     Dosage: UNK
     Route: 048
     Dates: start: 20150422
  2. LASIX [Concomitant]
     Active Substance: FUROSEMIDE
     Indication: OEDEMA
     Dosage: UNK
     Route: 065
  3. ALLEGRA [Concomitant]
     Active Substance: FEXOFENADINE HYDROCHLORIDE
     Indication: SEASONAL ALLERGY
     Dosage: UNK
     Route: 048
  4. SENNOSIDE A+B [Suspect]
     Active Substance: SENNOSIDES A AND B
     Indication: CONSTIPATION
     Dosage: UNK
     Route: 065

REACTIONS (6)
  - Anorectal discomfort [Unknown]
  - Drug eruption [Unknown]
  - Vomiting [Unknown]
  - Diarrhoea [Unknown]
  - Periodontitis [Unknown]
  - Oedema [Unknown]
